FAERS Safety Report 7913198-5 (Version None)
Quarter: 2011Q4

REPORT INFORMATION
  Report Type: 
  Country: None (occurrence: None)
  Receive Date: 20111114
  Receipt Date: 20111104
  Transmission Date: 20120403
  Serious: Yes (Hospitalization)
  Sender: FDA-Public Use
  Company Number: IT-GILEAD-2011-0046513

PATIENT
  Sex: Female

DRUGS (10)
  1. ASPIRIN [Concomitant]
     Dosage: 100 MG, UNK
     Route: 048
  2. ATORVASTATIN CALCIUM [Concomitant]
     Dosage: 20 MG, UNK
     Route: 048
  3. MINITRAN                           /00003201/ [Concomitant]
     Dosage: 10 MG, UNK
     Route: 062
  4. LASIX [Suspect]
     Indication: CARDIAC FAILURE
     Dosage: 25 MG, UNK
     Route: 048
     Dates: start: 20110930
  5. PROMAZINE HYDROCHLORIDE [Concomitant]
     Route: 048
  6. ASPIRIN [Concomitant]
  7. LEVOTHYROXINE SODIUM [Concomitant]
     Dosage: 100 MG, UNK
     Route: 048
  8. RANOLAZINE [Suspect]
     Indication: ANGINA PECTORIS
     Dosage: 375 MG, UNK
     Route: 048
     Dates: start: 20111005, end: 20111008
  9. ALLOPURINOL [Concomitant]
     Dosage: 300 MG, UNK
     Route: 048
  10. RAMIPRIL [Suspect]
     Indication: CARDIAC FAILURE
     Dosage: 2.5 MG, UNK
     Route: 048
     Dates: start: 20111001, end: 20111008

REACTIONS (1)
  - RENAL FAILURE ACUTE [None]
